FAERS Safety Report 16271040 (Version 2)
Quarter: 2019Q2

REPORT INFORMATION
  Report Type: Spontaneous
  Country: NL (occurrence: NL)
  Receive Date: 20190503
  Receipt Date: 20190604
  Transmission Date: 20190711
  Serious: Yes (Other)
  Sender: FDA-Public Use
  Company Number: NL-TEVA-2019-NL-1045891

PATIENT
  Sex: Female

DRUGS (3)
  1. METFORMINE TABLET, 500 MG (MILLIGRAM) [Suspect]
     Active Substance: METFORMIN HYDROCHLORIDE
     Indication: LARGE FOR DATES BABY
     Dosage: 1 DOSAGE FORMS DAILY; 1X PER DAY
     Route: 065
     Dates: start: 20180710
  2. FERINJECT [Suspect]
     Active Substance: FERRIC CARBOXYMALTOSE
     Indication: ANAEMIA
     Route: 065
     Dates: start: 20180910
  3. METFORMINE TABLET, 500 MG (MILLIGRAM) [Suspect]
     Active Substance: METFORMIN HYDROCHLORIDE
     Indication: HYPERGLYCAEMIA

REACTIONS (2)
  - Maternal exposure during pregnancy [Unknown]
  - Foetal death [Unknown]
